FAERS Safety Report 9663970 (Version 2)
Quarter: 2013Q4

REPORT INFORMATION
  Report Type: Report from Study
  Country: US (occurrence: US)
  Receive Date: 20131101
  Receipt Date: 20131101
  Transmission Date: 20140711
  Serious: Yes (Death, Life-Threatening, Hospitalization, Other)
  Sender: FDA-Public Use
  Company Number: US-SA-CLOF-1002772

PATIENT
  Age: 67 Year
  Sex: Male
  Weight: 88 kg

DRUGS (11)
  1. CLOFARABINE [Suspect]
     Indication: ACUTE MYELOID LEUKAEMIA
     Route: 042
     Dates: start: 20120820, end: 20120824
  2. CLOFARABINE [Suspect]
     Indication: ACUTE MYELOID LEUKAEMIA
     Route: 042
     Dates: start: 20120820, end: 20120824
  3. AMLODIPINE [Concomitant]
     Indication: CARDIOVASCULAR DISORDER
     Dates: start: 20120822, end: 20120828
  4. METHYLPREDNISOLONE [Concomitant]
     Indication: SYSTEMIC INFLAMMATORY RESPONSE SYNDROME
     Dates: start: 20120907, end: 20120907
  5. METOPROLOL [Concomitant]
     Indication: CARDIOVASCULAR DISORDER
     Dates: start: 20120830, end: 20120830
  6. METOPROLOL [Concomitant]
     Indication: CARDIOVASCULAR DISORDER
     Dates: start: 20120905, end: 20120906
  7. POTASSIUM CHLORIDE [Concomitant]
     Indication: BLOOD POTASSIUM DECREASED
     Dates: start: 20120814, end: 20120814
  8. POTASSIUM CHLORIDE [Concomitant]
     Indication: BLOOD POTASSIUM DECREASED
     Dates: start: 20120815, end: 20120815
  9. POTASSIUM CHLORIDE [Concomitant]
     Indication: BLOOD POTASSIUM DECREASED
     Dates: start: 20120828, end: 20120828
  10. POTASSIUM CHLORIDE [Concomitant]
     Indication: BLOOD POTASSIUM DECREASED
     Dates: start: 20120830, end: 20120830
  11. VALACICLOVIR [Concomitant]
     Indication: PROPHYLAXIS
     Dates: start: 20120815, end: 20120904

REACTIONS (5)
  - Respiratory failure [Fatal]
  - Staphylococcal sepsis [Fatal]
  - Multi-organ failure [Fatal]
  - Atrial fibrillation [Recovered/Resolved]
  - Renal failure acute [Fatal]
